FAERS Safety Report 17705034 (Version 1)
Quarter: 2020Q2

REPORT INFORMATION
  Report Type: Spontaneous
  Country: MX (occurrence: MX)
  Receive Date: 20200424
  Receipt Date: 20200424
  Transmission Date: 20200714
  Serious: Yes (Other)
  Sender: FDA-Public Use
  Company Number: MX-ROCHE-2589943

PATIENT
  Age: 16 Year
  Sex: Male

DRUGS (2)
  1. SALBUTAMOL [Concomitant]
     Active Substance: ALBUTEROL
     Indication: ASTHMA
     Route: 065
  2. OMALIZUMAB. [Suspect]
     Active Substance: OMALIZUMAB
     Indication: PRODUCT USED FOR UNKNOWN INDICATION
     Dosage: 600 MG, QMO (2 WEEKS BEFORE)
     Route: 065

REACTIONS (4)
  - Deep vein thrombosis [Unknown]
  - Peripheral venous disease [Recovered/Resolved]
  - Melanocytic naevus [Unknown]
  - Angiopathy [Unknown]
